FAERS Safety Report 13459693 (Version 2)
Quarter: 2017Q2

REPORT INFORMATION
  Report Type: Report from Study
  Country: BG (occurrence: BG)
  Receive Date: 20170419
  Receipt Date: 20170525
  Transmission Date: 20170830
  Serious: Yes (Other)
  Sender: FDA-Public Use
  Company Number: PHHY2016BG170574

PATIENT
  Sex: Female
  Weight: 50 kg

DRUGS (3)
  1. TASIGNA [Suspect]
     Active Substance: NILOTINIB
     Dosage: 300 MG, BID
     Route: 065
  2. TASIGNA [Suspect]
     Active Substance: NILOTINIB
     Indication: CHRONIC MYELOID LEUKAEMIA
     Dosage: 600 MG, QD (2X300 MG)
     Route: 048
     Dates: start: 201410, end: 20161208
  3. ROFERON-A [Suspect]
     Active Substance: INTERFERON ALFA-2A
     Indication: PRODUCT USED FOR UNKNOWN INDICATION
     Dosage: UNK
     Route: 065
     Dates: start: 20161208, end: 20170405

REACTIONS (4)
  - Maternal exposure during pregnancy [Unknown]
  - Genital haemorrhage [Unknown]
  - Normal newborn [Unknown]
  - Menstruation irregular [Unknown]
